FAERS Safety Report 9785858 (Version 1)
Quarter: 2013Q4

REPORT INFORMATION
  Report Type: Spontaneous
  Country: MX (occurrence: None)
  Receive Date: 20131224
  Receipt Date: 20131224
  Transmission Date: 20140711
  Serious: Yes (Hospitalization, Other)
  Sender: FDA-Public Use
  Company Number: SYM-2013-14222

PATIENT
  Age: 24 Year
  Sex: Male

DRUGS (3)
  1. FLAGYL (METRONIDAZOLE) (5 MILLIGRAM/MILLILITERS, SOLUTION FOR INJECTION) (METRONIDAZOLE) [Suspect]
     Indication: PROPHYLAXIS
     Route: 042
     Dates: start: 20131204, end: 20131208
  2. TYGACIL (TIGECYCLINE) (TIGECYCLINE) [Concomitant]
  3. SINERGIX (SINERGIX) (TRAMADOL HYDROCHLORIDE, KETOROLAC TROMETHAMINE) [Concomitant]

REACTIONS (8)
  - Hypoxia [None]
  - Bradycardia [None]
  - Tachycardia [None]
  - Application site pain [None]
  - Application site pain [None]
  - Nausea [None]
  - Dizziness [None]
  - Incorrect drug administration rate [None]
